FAERS Safety Report 12872618 (Version 2)
Quarter: 2016Q4

REPORT INFORMATION
  Report Type: Spontaneous
  Country: JP (occurrence: JP)
  Receive Date: 20161021
  Receipt Date: 20161104
  Transmission Date: 20170207
  Serious: No
  Sender: FDA-Public Use
  Company Number: JP-ELI_LILLY_AND_COMPANY-JP201610004943

PATIENT
  Age: 81 Year
  Sex: Female

DRUGS (6)
  1. CELECOX [Concomitant]
     Active Substance: CELECOXIB
     Dosage: UNK DF, UNK
     Route: 048
     Dates: start: 20160916
  2. TAKECAB [Concomitant]
     Active Substance: VONOPRAZAN FUMURATE
     Dosage: UNK DF, UNK
     Route: 048
     Dates: start: 20160916
  3. CYMBALTA [Suspect]
     Active Substance: DULOXETINE HYDROCHLORIDE
     Indication: BACK PAIN
     Dosage: 20 MG, QD
     Route: 048
     Dates: start: 20161005, end: 20161005
  4. ARTZ DISPO [Concomitant]
     Dosage: UNK
     Route: 014
     Dates: start: 20160928
  5. EDIROL [Concomitant]
     Active Substance: ELDECALCITOL
  6. BONALON [Concomitant]
     Active Substance: ALENDRONATE SODIUM
     Dosage: UNK
     Route: 042
     Dates: start: 20160916

REACTIONS (2)
  - Pyrexia [Recovering/Resolving]
  - Rash generalised [Recovering/Resolving]

NARRATIVE: CASE EVENT DATE: 20161005
